FAERS Safety Report 9415535 (Version 3)
Quarter: 2013Q3

REPORT INFORMATION
  Report Type: Spontaneous
  Country: BR (occurrence: BR)
  Receive Date: 20130723
  Receipt Date: 20130813
  Transmission Date: 20140515
  Serious: Yes (Other)
  Sender: FDA-Public Use
  Company Number: BR-PFIZER INC-2013210276

PATIENT
  Age: 32 Year
  Sex: Female
  Weight: 45 kg

DRUGS (3)
  1. DEPO-PROVERA [Suspect]
     Indication: MENSTRUAL CYCLE MANAGEMENT
     Dosage: UNK
     Dates: start: 20130608
  2. TOPIRAMATE [Concomitant]
     Indication: EPILEPSY
  3. EXODUS [Concomitant]
     Indication: ANTIDEPRESSANT THERAPY
     Dosage: UNK

REACTIONS (12)
  - Keratitis [Recovered/Resolved]
  - Ocular hyperaemia [Recovered/Resolved]
  - Feeling hot [Recovered/Resolved]
  - Pruritus [Recovered/Resolved]
  - Rash macular [Recovered/Resolved]
  - Blood pressure decreased [Recovered/Resolved]
  - Body temperature decreased [Recovered/Resolved]
  - Weight increased [Recovered/Resolved]
  - Menorrhagia [Not Recovered/Not Resolved]
  - Abdominal pain [Unknown]
  - Metrorrhagia [Unknown]
  - Hypersensitivity [Unknown]
